FAERS Safety Report 23470664 (Version 1)
Quarter: 2024Q1

REPORT INFORMATION
  Report Type: Spontaneous
  Country: US (occurrence: US)
  Receive Date: 20240202
  Receipt Date: 20240202
  Transmission Date: 20240409
  Serious: No
  Sender: FDA-Public Use
  Company Number: US-LEO Pharma-367265

PATIENT
  Age: 29 Year
  Sex: Male

DRUGS (1)
  1. ADBRY [Suspect]
     Active Substance: TRALOKINUMAB-LDRM
     Indication: Dermatitis atopic
     Dosage: TREATMENT IS ONGOING??FREQUENCY:?INJECT 4 SYRINGES UNDER THE SKIN ON DAY 1, THEN START MAINTENANCE D
     Dates: start: 202401

REACTIONS (1)
  - Heart rate increased [Recovered/Resolved]
